FAERS Safety Report 18213526 (Version 10)
Quarter: 2021Q3

REPORT INFORMATION
  Report Type: Spontaneous
  Country: US (occurrence: US)
  Receive Date: 20200831
  Receipt Date: 20210823
  Transmission Date: 20211014
  Serious: Yes (Other)
  Sender: FDA-Public Use
  Company Number: US-PFIZER INC-2017269044

PATIENT
  Age: 62 Year
  Sex: Female

DRUGS (44)
  1. LYRICA [Suspect]
     Active Substance: PREGABALIN
     Indication: BACK PAIN
     Dosage: 225MG A DAY (75MG IN AM AND 150MG IN PM)
     Route: 048
  2. KETOROLAC [Concomitant]
     Active Substance: KETOROLAC TROMETHAMINE
     Dosage: 1 DROP, 4X/DAY [RIGHT EYE]
     Route: 047
     Dates: start: 20170501
  3. NYSTATIN. [Concomitant]
     Active Substance: NYSTATIN
     Dosage: UNK, 2X/DAY (100.000 IU, 1 APPL ,TOPICAL)
     Route: 061
     Dates: start: 20161118
  4. LYRICA [Suspect]
     Active Substance: PREGABALIN
     Indication: FIBROMYALGIA
     Dosage: 75MG ONCE A DAY (1 CAP PO (PER ORAL) IN AM/LYRICA TO 75 IN AM )
     Route: 048
  5. FLUCONAZOLE. [Concomitant]
     Active Substance: FLUCONAZOLE
     Dosage: 200 MG, DAILY
     Route: 048
     Dates: start: 20170215
  6. GLUCAGON. [Concomitant]
     Active Substance: GLUCAGON
     Indication: BLOOD GLUCOSE DECREASED
     Dosage: 1 MG
     Route: 058
     Dates: start: 20160224
  7. KETOROLAC [Concomitant]
     Active Substance: KETOROLAC TROMETHAMINE
     Dosage: 1 DROP, 3X/DAY [THREE TIMES PER DAY FOR THREE DAYS PRIOR TO SURGERY]
     Route: 047
  8. VOLTAREN [DICLOFENAC] [Concomitant]
     Active Substance: DICLOFENAC SODIUM
     Indication: PAIN
     Dosage: UNK, AS NEEDED [1 APPL , FOUR TIMES A DAY]
     Route: 061
     Dates: start: 20170503
  9. CRESTOR [Concomitant]
     Active Substance: ROSUVASTATIN CALCIUM
     Dosage: 20 MG, DAILY
     Route: 048
     Dates: start: 20161209
  10. LYRICA [Suspect]
     Active Substance: PREGABALIN
     Indication: OSTEOARTHRITIS
     Dosage: 75MG, TWICE A DAY
     Route: 048
  11. PRIVIGEN [Concomitant]
     Active Substance: HUMAN IMMUNOGLOBULIN G
     Dosage: UNK [45 G]
     Route: 042
     Dates: start: 20170227
  12. OMEPRAZOLE. [Concomitant]
     Active Substance: OMEPRAZOLE
     Dosage: 20 MG, 2X/DAY
     Route: 048
     Dates: start: 20170331
  13. DOCUSATE [Concomitant]
     Active Substance: DOCUSATE
     Indication: CONSTIPATION
     Dosage: 200 MG, 1X/DAY [EVERY NIGHT AT BEDTIME]
     Route: 048
     Dates: start: 20160418
  14. ZOFRAN [Concomitant]
     Active Substance: ONDANSETRON HYDROCHLORIDE
     Indication: VOMITING
  15. METFORMIN [Concomitant]
     Active Substance: METFORMIN HYDROCHLORIDE
     Dosage: 2500 MG, DAILY [TAKE 2 TABLETS IN THE MORNING AND 3 TABLETS IN THE EVENING]
     Route: 048
     Dates: start: 20170609
  16. LOSARTAN. [Concomitant]
     Active Substance: LOSARTAN
     Dosage: 25 MG, DAILY
     Route: 048
     Dates: start: 20161209
  17. LYRICA [Suspect]
     Active Substance: PREGABALIN
     Indication: DIABETIC NEUROPATHY
     Dosage: 150 MG, TWICE A DAY
     Route: 048
     Dates: start: 20170310
  18. TRIAMCINOLONE [Concomitant]
     Active Substance: TRIAMCINOLONE
     Dosage: UNK, 2X/DAY [1 SPRAY, EACH NOSTRILS]
     Route: 045
     Dates: start: 20161220
  19. VICODIN [Concomitant]
     Active Substance: ACETAMINOPHEN\HYDROCODONE BITARTRATE
     Dosage: UNK AS NEEDED [VICODIN5 MG? 300 MG ]
     Route: 048
     Dates: start: 20170501
  20. VIGAMOX [Concomitant]
     Active Substance: MOXIFLOXACIN HYDROCHLORIDE
     Dosage: 1 DROP, 3X/DAY [FOR THREE DAYS PRIOR TO SURGERY]
     Route: 047
  21. KETOROLAC [Concomitant]
     Active Substance: KETOROLAC TROMETHAMINE
     Dosage: 1 DROP, 4X/DAY [LEFT EYE]
     Route: 047
     Dates: start: 20170518
  22. CLOBETASOL [Concomitant]
     Active Substance: CLOBETASOL
     Dosage: UNK, 2X/DAY [1 APPL, TOPICAL]
     Route: 061
     Dates: start: 20160511
  23. ACETAMINOPHEN. [Concomitant]
     Active Substance: ACETAMINOPHEN
     Indication: PAIN
  24. FOLIC ACID. [Concomitant]
     Active Substance: FOLIC ACID
     Dosage: 1 MG, 1X/DAY
     Route: 048
     Dates: start: 20161226
  25. VITAMIN D3 [Concomitant]
     Active Substance: CHOLECALCIFEROL
     Dosage: 2000 IU, DAILY
     Route: 048
     Dates: start: 20130215
  26. VIGAMOX [Concomitant]
     Active Substance: MOXIFLOXACIN HYDROCHLORIDE
     Dosage: 1 DROP, 4X/DAY [RIGHT EYE]
     Route: 047
     Dates: start: 20170501
  27. ACETAMINOPHEN. [Concomitant]
     Active Substance: ACETAMINOPHEN
     Indication: PYREXIA
     Dosage: UNK, AS NEEDED (1000 MG, BID (TWICE A DAY), DO NOT EXCEED 4000MG/DAY)
     Route: 048
     Dates: start: 20151204
  28. METHOCARBAMOL. [Concomitant]
     Active Substance: METHOCARBAMOL
     Dosage: UNK
  29. CLOTRIMAZOLE. [Concomitant]
     Active Substance: CLOTRIMAZOLE
     Dosage: UNK, 2X/DAY
     Route: 061
     Dates: start: 20170109
  30. LEVEMIR [Concomitant]
     Active Substance: INSULIN DETEMIR
     Dosage: 13 IU, 1X/DAY [EVERY NIGHT AT BEDTIME]
     Route: 058
     Dates: start: 20170316
  31. FUROSEMIDE. [Concomitant]
     Active Substance: FUROSEMIDE
     Dosage: 20 MG, ALTERNATE DAY
     Route: 048
     Dates: start: 20170328
  32. LEVOTHYROXINE. [Concomitant]
     Active Substance: LEVOTHYROXINE
     Dosage: 50 UG, 1X/DAY [(0.05 MG)]
     Route: 048
     Dates: start: 20170403
  33. VITAMIN B12 [Concomitant]
     Active Substance: CYANOCOBALAMIN
     Dosage: 1000 UG, WEEKLY (1000 UG, Q7DAYS, (EVERY 7 DAYS)))
     Route: 048
     Dates: start: 20161101
  34. TERBINAFINE. [Concomitant]
     Active Substance: TERBINAFINE
     Dosage: 250 MG, 1X/DAY
     Route: 048
     Dates: start: 20170215
  35. TRIAMCINOLONE [Concomitant]
     Active Substance: TRIAMCINOLONE
     Dosage: UNK, 2X/DAY [ (1 APPL, TOPICAL) 0.1 %]
     Route: 061
     Dates: start: 20160303
  36. MUCINEX [Concomitant]
     Active Substance: GUAIFENESIN
     Indication: NASAL CONGESTION
     Dosage: 600 MG, AS NEEDED (BID (TWO TIMES A DAY))
     Dates: start: 20160331
  37. KETOROLAC [Concomitant]
     Active Substance: KETOROLAC TROMETHAMINE
     Dosage: 1 DROP, 3X/DAY [FOR THREE DAYS PRIOR TO SURGERY]
     Route: 047
  38. NAPROXEN. [Concomitant]
     Active Substance: NAPROXEN
     Indication: PAIN
     Dosage: 440 MG, AS NEEDED (TWO TIMES A DAY)
     Route: 048
     Dates: start: 20160502
  39. ALLOPURINOL. [Concomitant]
     Active Substance: ALLOPURINOL
     Dosage: 300 UG, DAILY
     Route: 048
     Dates: start: 20160920
  40. PROTOPIC [Concomitant]
     Active Substance: TACROLIMUS
     Indication: RASH
     Dosage: UNK, AS NEEDED
     Route: 061
     Dates: start: 20161101
  41. NOVOLOG [Concomitant]
     Active Substance: INSULIN ASPART
     Dosage: UNK
     Route: 058
     Dates: start: 20170404
  42. DOMPERIDONE [Concomitant]
     Active Substance: DOMPERIDONE
     Dosage: 10 MG, 3X/DAY [TAKES 30 MIN BEFORE MEALS]
     Route: 048
     Dates: start: 20160502
  43. ZOFRAN [Concomitant]
     Active Substance: ONDANSETRON HYDROCHLORIDE
     Indication: NAUSEA
     Dosage: 8 MG, AS NEEDED [POQ 8 HRS ]
     Route: 048
     Dates: start: 20170607
  44. ASPIRIN [ACETYLSALICYLIC ACID] [Concomitant]
     Active Substance: ASPIRIN
     Dosage: 81 MG, DAILY
     Route: 048
     Dates: start: 20140610

REACTIONS (7)
  - COVID-19 [Unknown]
  - Pain [Unknown]
  - Neuralgia [Unknown]
  - Insomnia [Unknown]
  - Back pain [Unknown]
  - Intentional product misuse [Unknown]
  - Nerve injury [Unknown]
